FAERS Safety Report 15577276 (Version 1)
Quarter: 2018Q4

REPORT INFORMATION
  Report Type: Spontaneous
  Country: CO (occurrence: CO)
  Receive Date: 20181102
  Receipt Date: 20181102
  Transmission Date: 20190205
  Serious: Yes (Other)
  Sender: FDA-Public Use
  Company Number: CO-ROCHE-2208923

PATIENT
  Age: 82 Year
  Sex: Male

DRUGS (1)
  1. ERIVEDGE [Suspect]
     Active Substance: VISMODEGIB
     Indication: PRODUCT USED FOR UNKNOWN INDICATION
     Route: 065

REACTIONS (4)
  - Pharyngeal oedema [Recovering/Resolving]
  - Pharyngeal hypoaesthesia [Recovering/Resolving]
  - Paralysis [Recovering/Resolving]
  - Hypoaesthesia oral [Recovering/Resolving]
